FAERS Safety Report 24172755 (Version 2)
Quarter: 2024Q3

REPORT INFORMATION
  Report Type: Spontaneous
  Country: US (occurrence: US)
  Receive Date: 20240805
  Receipt Date: 20240815
  Transmission Date: 20241016
  Serious: No
  Sender: ABBVIE
  Company Number: US-ABBVIE-5864985

PATIENT
  Age: 49 Year
  Sex: Female

DRUGS (1)
  1. RESTASIS [Suspect]
     Active Substance: CYCLOSPORINE
     Indication: Dry eye
     Dosage: 2 TIMES PER DAY
     Route: 047
     Dates: start: 202403

REACTIONS (2)
  - Trichiasis [Unknown]
  - Eyelash changes [Unknown]

NARRATIVE: CASE EVENT DATE: 20240101
